FAERS Safety Report 5146421-3 (Version None)
Quarter: 2006Q4

REPORT INFORMATION
  Report Type: 
  Country: None (occurrence: None)
  Receive Date: 20061102
  Receipt Date: 20061019
  Transmission Date: 20070319
  Serious: Yes (Other)
  Sender: FDA-Public Use
  Company Number: 2006129085

PATIENT
  Age: 45 Year
  Sex: Female

DRUGS (3)
  1. LYRICA [Suspect]
     Indication: NERVOUS SYSTEM DISORDER
     Dosage: 600 MG (300 MG, 2 IN 1 D)
     Dates: start: 20060401
  2. IBUPROFEN [Concomitant]
  3. ALL OTHER THERAPEUTIC PRODUCTS (ALL OTHER THERAPEUTIC PRODUCTS) [Concomitant]

REACTIONS (16)
  - ABDOMINAL DISTENSION [None]
  - ACNE [None]
  - CONSTIPATION [None]
  - DRUG INEFFECTIVE [None]
  - DYSPEPSIA [None]
  - DYSURIA [None]
  - EYE PAIN [None]
  - FLATULENCE [None]
  - INSOMNIA [None]
  - JOINT SWELLING [None]
  - MEMORY IMPAIRMENT [None]
  - OEDEMA PERIPHERAL [None]
  - PHOTOPHOBIA [None]
  - RENAL IMPAIRMENT [None]
  - SPEECH DISORDER [None]
  - WEIGHT INCREASED [None]
